FAERS Safety Report 23976580 (Version 2)
Quarter: 2024Q2

REPORT INFORMATION
  Report Type: Spontaneous
  Country: JP (occurrence: JP)
  Receive Date: 20240614
  Receipt Date: 20240626
  Transmission Date: 20240716
  Serious: Yes (Other)
  Sender: FDA-Public Use
  Company Number: JP-SUN PHARMACEUTICAL INDUSTRIES LTD-2024R1-449831

PATIENT
  Age: 11 Year
  Sex: Male
  Weight: 26.2 kg

DRUGS (1)
  1. DOXORUBICIN [Suspect]
     Active Substance: DOXORUBICIN
     Indication: Ewing^s sarcoma
     Dosage: 375 MILLIGRAM/SQ. METER
     Route: 065

REACTIONS (2)
  - Embolic stroke [Recovered/Resolved]
  - Cardiac dysfunction [Recovered/Resolved]
